FAERS Safety Report 20300289 (Version 3)
Quarter: 2022Q1

REPORT INFORMATION
  Report Type: Report from Study
  Country: KR (occurrence: KR)
  Receive Date: 20220105
  Receipt Date: 20220114
  Transmission Date: 20220423
  Serious: Yes (Hospitalization)
  Sender: FDA-Public Use
  Company Number: KR-PFIZER INC-202101880859

PATIENT
  Age: 58 Year
  Sex: Male
  Weight: 85 kg

DRUGS (1)
  1. LORLATINIB [Suspect]
     Active Substance: LORLATINIB
     Indication: Non-small cell lung cancer
     Dosage: 75 MG, 1X/DAY
     Route: 048
     Dates: start: 20211013, end: 20211229

REACTIONS (3)
  - Fluid retention [Recovered/Resolved]
  - Dyspnoea [Recovered/Resolved]
  - Cardiomegaly [Recovered/Resolved]

NARRATIVE: CASE EVENT DATE: 20211229
